FAERS Safety Report 7468963-8 (Version None)
Quarter: 2011Q2

REPORT INFORMATION
  Report Type: 
  Country: None (occurrence: None)
  Receive Date: 20110429
  Receipt Date: 20110419
  Transmission Date: 20111010
  Serious: Yes (Other)
  Sender: FDA-Public Use
  Company Number: B0715635A

PATIENT

DRUGS (1)
  1. ZINACEF [Suspect]
     Indication: CATARACT OPERATION

REACTIONS (9)
  - OCULAR TOXICITY [None]
  - CORNEAL OPACITY [None]
  - RETINAL PIGMENTATION [None]
  - VISUAL ACUITY REDUCED [None]
  - CORNEAL OEDEMA [None]
  - CORNEAL DISORDER [None]
  - WRONG TECHNIQUE IN DRUG USAGE PROCESS [None]
  - INCORRECT DOSE ADMINISTERED [None]
  - CORNEAL DEFECT [None]
